FAERS Safety Report 23907750 (Version 2)
Quarter: 2024Q3

REPORT INFORMATION
  Report Type: Spontaneous
  Country: US (occurrence: US)
  Receive Date: 20240528
  Receipt Date: 20240828
  Transmission Date: 20241017
  Serious: No
  Sender: BRISTOL MYERS SQUIBB
  Company Number: US-BRISTOL-MYERS SQUIBB COMPANY-2024-081908

PATIENT
  Age: 79 Year
  Sex: Female
  Weight: 45.81 kg

DRUGS (2)
  1. POMALYST [Suspect]
     Active Substance: POMALIDOMIDE
     Indication: Plasma cell myeloma
     Dosage: FREQUENCY: 3MG CAPSULE EVERY OTHER DAY FOR 21 DAYS THEN 1 WEEK OFF
     Route: 048
  2. POMALYST [Suspect]
     Active Substance: POMALIDOMIDE
     Route: 048

REACTIONS (4)
  - Red blood cell count decreased [Unknown]
  - Off label use [Unknown]
  - Fatigue [Unknown]
  - Dry skin [Not Recovered/Not Resolved]
